FAERS Safety Report 17850416 (Version 1)
Quarter: 2020Q2

REPORT INFORMATION
  Report Type: Spontaneous
  Country: CN (occurrence: CN)
  Receive Date: 20200602
  Receipt Date: 20200602
  Transmission Date: 20200714
  Serious: Yes (Hospitalization, Other)
  Sender: FDA-Public Use
  Company Number: CN-PFIZER INC-2020213342

PATIENT
  Age: 77 Year
  Sex: Female
  Weight: 50 kg

DRUGS (3)
  1. VANCOMYCIN HYDROCHLORIDE. [Suspect]
     Active Substance: VANCOMYCIN HYDROCHLORIDE
     Indication: INFECTION
  2. VANCOMYCIN HYDROCHLORIDE. [Suspect]
     Active Substance: VANCOMYCIN HYDROCHLORIDE
     Indication: OSTEONECROSIS
     Dosage: UNK, (100 (TEN THOUSAND UNIT) AT 1 MILLION U TWICE A DAY IVGTT)
     Route: 041
     Dates: start: 20200504, end: 20200514
  3. PREGABALIN. [Suspect]
     Active Substance: PREGABALIN
     Indication: HERPES ZOSTER
     Dosage: 75 MG, 1X/DAY
     Route: 048
     Dates: start: 20200520, end: 20200521

REACTIONS (7)
  - Blood urea increased [Unknown]
  - Rash [Recovering/Resolving]
  - Drug eruption [Unknown]
  - Confusional state [Unknown]
  - Anuria [Unknown]
  - Somnolence [Recovering/Resolving]
  - Blood creatinine increased [Unknown]

NARRATIVE: CASE EVENT DATE: 20200520
